FAERS Safety Report 17476335 (Version 1)
Quarter: 2020Q1

REPORT INFORMATION
  Report Type: Report from Study
  Country: CA (occurrence: CA)
  Receive Date: 20200228
  Receipt Date: 20200228
  Transmission Date: 20200409
  Serious: Yes (Other)
  Sender: FDA-Public Use
  Company Number: CA-JNJFOC-20191020101

PATIENT
  Sex: Female

DRUGS (1)
  1. STELARA [Suspect]
     Active Substance: USTEKINUMAB
     Indication: CROHN^S DISEASE
     Dosage: STRENGTH = 90 MG
     Route: 058

REACTIONS (9)
  - General physical health deterioration [Unknown]
  - Eye injury [Unknown]
  - Tremor [Unknown]
  - Stress [Unknown]
  - Blood test abnormal [Unknown]
  - Faecal calprotectin abnormal [Unknown]
  - Fall [Unknown]
  - Balance disorder [Unknown]
  - Social avoidant behaviour [Unknown]
